FAERS Safety Report 6293075-9 (Version None)
Quarter: 2009Q3

REPORT INFORMATION
  Report Type: 
  Country: None (occurrence: None)
  Receive Date: 20090731
  Receipt Date: 20090721
  Transmission Date: 20100115
  Serious: Yes (Other)
  Sender: FDA-Public Use
  Company Number: GB-JNJFOC-20090707024

PATIENT

DRUGS (3)
  1. INFLIXIMAB [Suspect]
     Dosage: 3 DOSES
     Route: 042
  2. INFLIXIMAB [Suspect]
     Indication: VASCULITIS
     Dosage: 5 DOSES
     Route: 042
  3. METHOTREXATE [Concomitant]
     Indication: VASCULITIS
     Dosage: 10MG/M^2

REACTIONS (2)
  - STAPHYLOCOCCAL SEPSIS [None]
  - THERAPEUTIC RESPONSE DECREASED [None]
